FAERS Safety Report 15681750 (Version 1)
Quarter: 2018Q4

REPORT INFORMATION
  Report Type: Spontaneous
  Country: DE (occurrence: DE)
  Receive Date: 20181203
  Receipt Date: 20181203
  Transmission Date: 20190205
  Serious: Yes (Other)
  Sender: FDA-Public Use
  Company Number: PHHY2016DE060930

PATIENT
  Age: 78 Year
  Sex: Male

DRUGS (4)
  1. HEPARIN [Suspect]
     Active Substance: HEPARIN SODIUM
     Indication: ANTIPLATELET THERAPY
     Dosage: 750 IU, UNK (1 HOUR)
     Route: 042
     Dates: start: 20131206
  2. WARFARIN [Concomitant]
     Active Substance: WARFARIN
     Indication: ANTIPLATELET THERAPY
     Route: 065
  3. HEPARIN [Suspect]
     Active Substance: HEPARIN SODIUM
     Dosage: 600 IU, UNK (1 HOUR)
     Route: 042
     Dates: start: 20131212
  4. HEPARIN [Suspect]
     Active Substance: HEPARIN SODIUM
     Dosage: 950 IU, UNK (1 HOUR)
     Route: 042
     Dates: start: 20131205

REACTIONS (2)
  - Haemoglobin decreased [Recovered/Resolved]
  - Gastrointestinal haemorrhage [Recovered/Resolved]

NARRATIVE: CASE EVENT DATE: 20131206
